FAERS Safety Report 20904270 (Version 2)
Quarter: 2022Q3

REPORT INFORMATION
  Report Type: Other
  Country: ES (occurrence: ES)
  Receive Date: 20220602
  Receipt Date: 20220823
  Transmission Date: 20221027
  Serious: Yes (Hospitalization)
  Sender: FDA-Public Use
  Company Number: ES-VELOXIS PHARMACEUTICALS-2022VELES-000324

PATIENT
  Age: 36 Year
  Sex: Male

DRUGS (3)
  1. MYCOPHENOLATE MOFETIL [Suspect]
     Active Substance: MYCOPHENOLATE MOFETIL
     Indication: Prophylaxis against transplant rejection
     Route: 065
  2. EVEROLIMUS [Suspect]
     Active Substance: EVEROLIMUS
     Indication: Prophylaxis against transplant rejection
     Route: 065
  3. TACROLIMUS [Suspect]
     Active Substance: TACROLIMUS
     Indication: Prophylaxis against transplant rejection
     Route: 065

REACTIONS (4)
  - Epstein Barr virus positive mucocutaneous ulcer [Recovered/Resolved]
  - Iron deficiency anaemia [Unknown]
  - C-reactive protein increased [Unknown]
  - Lymphopenia [Recovered/Resolved]
